FAERS Safety Report 7806305-6 (Version None)
Quarter: 2011Q4

REPORT INFORMATION
  Report Type: 
  Country: None (occurrence: None)
  Receive Date: 20111011
  Receipt Date: 20110930
  Transmission Date: 20120403
  Serious: Yes (Death, Other)
  Sender: FDA-Public Use
  Company Number: US-BAYER-200939899NA

PATIENT
  Age: 79 Year
  Sex: Male
  Weight: 77 kg

DRUGS (24)
  1. LIPITOR [Concomitant]
     Dosage: 10 MG, HS
     Route: 048
  2. PLAVIX [Concomitant]
     Dosage: 75 MG, QD
     Route: 048
  3. IMDUR [Concomitant]
     Dosage: 120 MG, QD
     Route: 048
     Dates: start: 20061206
  4. LASIX [Concomitant]
     Dosage: 10MG, 10MG AND 20MG [ONCE EACH]
     Route: 042
  5. NORMODYNE [Concomitant]
     Dosage: 600 MG, TID
     Route: 048
  6. PROTAMINE [Concomitant]
  7. ZAROXOLYN [Concomitant]
     Dosage: 2.5 MG, QD
     Route: 048
     Dates: start: 20050214
  8. ATENOLOL [Concomitant]
     Dosage: 100 MG, QD
     Route: 048
     Dates: start: 20050214
  9. MUCOMYST [Concomitant]
     Dosage: 600 MG, BID
     Route: 048
     Dates: start: 20040113
  10. ACETYLSALICYLIC ACID SRT [Concomitant]
     Dosage: 81 MG, QD
     Route: 048
  11. DIOVAN HCT [Concomitant]
     Route: 048
  12. TRASYLOL [Suspect]
     Indication: AORTIC VALVE REPLACEMENT
     Dosage: LOADING DOSE: 200ML
     Route: 042
     Dates: start: 20040120
  13. PLATELETS [Concomitant]
  14. LASIX [Concomitant]
     Dosage: 40MG EVERY 8 HOURS
     Route: 042
     Dates: start: 20040113
  15. TRASYLOL [Suspect]
     Indication: PRODUCT USED FOR UNKNOWN INDICATION
     Route: 042
     Dates: start: 20070301
  16. CATAPRES [Concomitant]
     Dosage: 0.3 MG, QD
     Route: 062
     Dates: start: 20050318
  17. PLASMA [Concomitant]
  18. TRIDIL [Concomitant]
     Route: 042
  19. MANNITOL [Concomitant]
  20. NIFEREX [Concomitant]
     Dosage: 150 MG, BID
     Route: 048
  21. NORVASC [Concomitant]
     Dosage: 10 MG, QD
     Route: 048
  22. ADENOSINE [Concomitant]
     Dosage: 12MG
  23. CARDURA [Concomitant]
     Dosage: 4 MG, BID
     Route: 048
  24. HEPARIN [Concomitant]

REACTIONS (13)
  - DEATH [None]
  - RENAL INJURY [None]
  - MULTI-ORGAN FAILURE [None]
  - RENAL IMPAIRMENT [None]
  - ANXIETY [None]
  - RENAL FAILURE [None]
  - EMOTIONAL DISTRESS [None]
  - STRESS [None]
  - UNEVALUABLE EVENT [None]
  - FEAR [None]
  - INJURY [None]
  - PAIN [None]
  - ANHEDONIA [None]
